FAERS Safety Report 4690319-1 (Version None)
Quarter: 2005Q2

REPORT INFORMATION
  Report Type: 
  Country: None (occurrence: None)
  Receive Date: 20050615
  Receipt Date: 20031027
  Transmission Date: 20051028
  Serious: Yes (Hospitalization)
  Sender: FDA-Public Use
  Company Number: DE-BRISTOL-MYERS SQUIBB COMPANY-12419669

PATIENT
  Age: 62 Year
  Sex: Male
  Weight: 70 kg

DRUGS (10)
  1. CISPLATIN [Suspect]
     Indication: BLADDER CANCER
     Route: 042
     Dates: start: 20031008, end: 20031008
  2. PACLITAXEL [Suspect]
     Indication: BLADDER CANCER
     Route: 042
     Dates: start: 20030808, end: 20030808
  3. GEMCITABINE [Suspect]
     Indication: BLADDER CANCER
     Dates: start: 20030808, end: 20030808
  4. KALIUMKLORIDE [Concomitant]
     Dates: start: 20030810
  5. ALDACTONE [Concomitant]
     Dates: start: 20030813
  6. DIPYRONE TAB [Concomitant]
     Dates: start: 20030701
  7. LASIX [Concomitant]
     Dates: start: 20030810
  8. PULMICORT [Concomitant]
  9. PANTOPRAZOLE SODIUM [Concomitant]
     Dates: start: 20031014, end: 20031020
  10. DIPYRONE TAB [Concomitant]
     Dates: start: 20030701

REACTIONS (2)
  - PYELONEPHRITIS [None]
  - PYREXIA [None]
